FAERS Safety Report 6805011-4 (Version None)
Quarter: 2010Q2

REPORT INFORMATION
  Report Type: 
  Country: None (occurrence: None)
  Receive Date: 20100628
  Receipt Date: 20070719
  Transmission Date: 20101027
  Serious: No
  Sender: FDA-Public Use
  Company Number: US-PFIZER INC-2007059793

PATIENT
  Sex: Male
  Weight: 79.83 kg

DRUGS (4)
  1. XALATAN [Suspect]
     Indication: INTRAOCULAR PRESSURE TEST
     Route: 047
     Dates: start: 20050101
  2. COUMADIN [Concomitant]
     Route: 048
  3. CHOLESTEROL [Concomitant]
     Route: 048
  4. ALBUTEROL [Concomitant]
     Indication: ASTHMA
     Route: 055

REACTIONS (4)
  - GROWTH OF EYELASHES [None]
  - INTRAOCULAR PRESSURE INCREASED [None]
  - PHOTOPHOBIA [None]
  - VISUAL IMPAIRMENT [None]
